FAERS Safety Report 23863905 (Version 2)
Quarter: 2024Q3

REPORT INFORMATION
  Report Type: Spontaneous
  Country: US (occurrence: US)
  Receive Date: 20240516
  Receipt Date: 20240828
  Transmission Date: 20241017
  Serious: No
  Sender: SANDOZ
  Company Number: US-SANDOZ-SDZ2024US049070

PATIENT
  Age: 60 Year
  Sex: Male

DRUGS (1)
  1. HYRIMOZ [Suspect]
     Active Substance: ADALIMUMAB-ADAZ
     Indication: Psoriatic arthropathy
     Dosage: 40 MG, Q2W (40 MG N/A DOSE EVERY N/A N/A
     Route: 058
     Dates: start: 20240512

REACTIONS (5)
  - Incorrect dose administered [Unknown]
  - Syringe issue [Unknown]
  - Needle issue [Unknown]
  - Wrong device used [Unknown]
  - Device delivery system issue [Unknown]

NARRATIVE: CASE EVENT DATE: 20240512
